FAERS Safety Report 16505614 (Version 2)
Quarter: 2019Q3

REPORT INFORMATION
  Report Type: Report from Study
  Country: US (occurrence: US)
  Receive Date: 20190701
  Receipt Date: 20190930
  Transmission Date: 20191004
  Serious: No
  Sender: FDA-Public Use
  Company Number: US-CLOVIS ONCOLOGY-CLO-2019-000837

PATIENT
  Age: 58 Year
  Sex: Female

DRUGS (3)
  1. RUBRACA [Suspect]
     Active Substance: RUCAPARIB CAMSYLATE
     Dosage: 600 MG, BID
     Route: 048
     Dates: start: 201906
  2. RUBRACA [Suspect]
     Active Substance: RUCAPARIB CAMSYLATE
     Indication: FALLOPIAN TUBE CANCER
     Dosage: 600 MG, BID
     Route: 048
     Dates: start: 20190429
  3. RUBRACA [Suspect]
     Active Substance: RUCAPARIB CAMSYLATE
     Dosage: UNK
     Route: 048
     Dates: start: 20190423

REACTIONS (14)
  - Productive cough [Unknown]
  - Abdominal pain [Recovered/Resolved]
  - Nasopharyngitis [Recovered/Resolved]
  - Caffeine allergy [Unknown]
  - Nausea [Recovering/Resolving]
  - Photosensitivity reaction [Unknown]
  - Musculoskeletal chest pain [Unknown]
  - Nausea [Recovered/Resolved]
  - Fatigue [Recovering/Resolving]
  - Abdominal distension [Unknown]
  - Abdominal pain [Unknown]
  - Dysgeusia [Recovering/Resolving]
  - Dizziness [Unknown]
  - Tumour marker increased [Recovering/Resolving]

NARRATIVE: CASE EVENT DATE: 2019
